FAERS Safety Report 22585190 (Version 1)
Quarter: 2023Q2

REPORT INFORMATION
  Report Type: Spontaneous
  Country: AU (occurrence: AU)
  Receive Date: 20230609
  Receipt Date: 20230609
  Transmission Date: 20230721
  Serious: Yes (Other)
  Sender: FDA-Public Use
  Company Number: AU-002147023-NVSC2023AU127188

PATIENT
  Sex: Male

DRUGS (2)
  1. IMATINIB [Suspect]
     Active Substance: IMATINIB
     Indication: Erdheim-Chester disease
     Dosage: UNK
     Route: 065
  2. INTERFERON [Suspect]
     Active Substance: INTERFERON
     Indication: Erdheim-Chester disease
     Dosage: UNK
     Route: 065

REACTIONS (3)
  - Erdheim-Chester disease [Unknown]
  - Malignant neoplasm progression [Unknown]
  - Product use in unapproved indication [Unknown]
